FAERS Safety Report 24368952 (Version 2)
Quarter: 2025Q1

REPORT INFORMATION
  Report Type: Spontaneous
  Country: JP (occurrence: JP)
  Receive Date: 20240927
  Receipt Date: 20250130
  Transmission Date: 20250408
  Serious: Yes (Other)
  Sender: GALDERMA
  Company Number: JP-GALDERMA-JP2024011153

PATIENT

DRUGS (1)
  1. NEMOLIZUMAB [Suspect]
     Active Substance: NEMOLIZUMAB
     Indication: Dermatitis atopic
     Route: 058
     Dates: start: 20240604, end: 20240604

REACTIONS (1)
  - Erythema multiforme [Unknown]

NARRATIVE: CASE EVENT DATE: 20240611
